FAERS Safety Report 11165002 (Version 1)
Quarter: 2015Q2

REPORT INFORMATION
  Report Type: Spontaneous
  Country: US (occurrence: None)
  Receive Date: 20150603
  Receipt Date: 20150603
  Transmission Date: 20150821
  Serious: Yes (Hospitalization)
  Sender: FDA-Public Use
  Company Number: None

PATIENT
  Age: 74 Year
  Sex: Male
  Weight: 91.6 kg

DRUGS (7)
  1. CYCLOPHOSPHAMIDE. [Suspect]
     Active Substance: CYCLOPHOSPHAMIDE
     Dates: end: 20150521
  2. ASPRIN [Concomitant]
     Active Substance: ASPIRIN
  3. DOXORUBICIN HYDROCHLORIDE. [Suspect]
     Active Substance: DOXORUBICIN HYDROCHLORIDE
     Dates: end: 20150521
  4. VINCRISTINE SULFATE. [Suspect]
     Active Substance: VINCRISTINE SULFATE
     Dates: end: 20150521
  5. RITUXIMAB (MOAB C2B8 ANTI CD20, CHIMERIC) [Suspect]
     Active Substance: RITUXIMAB
     Dates: end: 20150521
  6. PREDNISONE. [Suspect]
     Active Substance: PREDNISONE
     Dates: end: 20150523
  7. OXYCODONE [Concomitant]
     Active Substance: OXYCODONE

REACTIONS (7)
  - Intestinal perforation [None]
  - Escherichia urinary tract infection [None]
  - Ischaemia [None]
  - Peritonitis bacterial [None]
  - Klebsiella infection [None]
  - Small intestinal obstruction [None]
  - Neutropenia [None]

NARRATIVE: CASE EVENT DATE: 20150523
